FAERS Safety Report 9361723 (Version 2)
Quarter: 2013Q3

REPORT INFORMATION
  Report Type: Spontaneous
  Country: US (occurrence: US)
  Receive Date: 20130621
  Receipt Date: 20130702
  Transmission Date: 20140515
  Serious: No
  Sender: FDA-Public Use
  Company Number: US-TEVA-414510USA

PATIENT
  Age: 19 Year
  Sex: Female
  Weight: 70.37 kg

DRUGS (1)
  1. PLAN B ONE-STEP [Suspect]
     Indication: POST COITAL CONTRACEPTION
     Dosage: 1.5 MILLIGRAM DAILY;
     Route: 048
     Dates: start: 20130615, end: 20130615

REACTIONS (2)
  - Faeces discoloured [Recovered/Resolved]
  - Abdominal pain lower [Recovered/Resolved]
